FAERS Safety Report 8093053-3 (Version None)
Quarter: 2012Q1

REPORT INFORMATION
  Report Type: 
  Country: None (occurrence: None)
  Receive Date: 20120128
  Receipt Date: 20111011
  Transmission Date: 20120608
  Serious: No
  Sender: FDA-Public Use
  Company Number: PR-ABBOTT-11P-131-0857572-00

PATIENT
  Sex: Female
  Weight: 58.112 kg

DRUGS (1)
  1. HUMIRA [Suspect]
     Indication: CROHN'S DISEASE
     Route: 058
     Dates: start: 20100101

REACTIONS (8)
  - MIGRAINE [None]
  - INJECTION SITE ERYTHEMA [None]
  - INJECTION SITE PAIN [None]
  - INJECTION SITE URTICARIA [None]
  - RASH [None]
  - INJECTION SITE REACTION [None]
  - PAIN [None]
  - INJECTION SITE HAEMATOMA [None]
